FAERS Safety Report 7366140-2 (Version None)
Quarter: 2011Q1

REPORT INFORMATION
  Report Type: 
  Country: None (occurrence: None)
  Receive Date: 20110322
  Receipt Date: 20110310
  Transmission Date: 20110831
  Serious: Yes (Life-Threatening, Hospitalization)
  Sender: FDA-Public Use
  Company Number: KR-CELGENEUS-286-C5013-11011893

PATIENT
  Sex: Male
  Weight: 52.5 kg

DRUGS (15)
  1. MEGESTROL ACETATE [Concomitant]
     Dosage: 20 MILLILITER
     Route: 048
     Dates: start: 20101115
  2. PANTOPRAZOLE [Concomitant]
     Dosage: 20 MILLIGRAM
     Route: 048
     Dates: start: 20101108
  3. MELPHALAN [Suspect]
     Indication: MULTIPLE MYELOMA
     Dosage: 6 MILLIGRAM
     Route: 065
     Dates: start: 20101122
  4. PREDNISONE [Suspect]
     Dosage: 105 MILLIGRAM
     Route: 065
     Dates: start: 20110103, end: 20110120
  5. MELOXICAM [Concomitant]
     Indication: CHEST PAIN
     Dosage: 7.5 MILLIGRAM
     Route: 048
     Dates: start: 20101108
  6. OXYCODONE [Concomitant]
     Indication: CHEST PAIN
     Dosage: 15 MILLIGRAM
     Route: 048
     Dates: start: 20110110
  7. THALIDOMIDE [Suspect]
     Indication: MULTIPLE MYELOMA
     Dosage: 200 MILLIGRAM
     Route: 048
     Dates: start: 20101122
  8. DOMPERIDONE MALEATE [Concomitant]
     Dosage: 30 MILLIGRAM
     Route: 048
     Dates: start: 20101206
  9. THALIDOMIDE [Suspect]
     Dosage: 200 MILLIGRAM
     Route: 048
     Dates: start: 20110103, end: 20110120
  10. MELPHALAN [Suspect]
     Dosage: 6 MILLIGRAM
     Route: 065
     Dates: start: 20110103, end: 20110120
  11. PREDNISONE [Suspect]
     Indication: MULTIPLE MYELOMA
     Dosage: 100 MILLIGRAM
     Route: 065
     Dates: start: 20101122
  12. MAGNESIUM OXIDE [Concomitant]
     Indication: CONSTIPATION
     Dosage: 3 GRAM
     Route: 048
     Dates: start: 20101213, end: 20110102
  13. ASPIRIN [Concomitant]
     Indication: THROMBOSIS PROPHYLAXIS
     Dosage: 100 MILLIGRAM
     Route: 048
     Dates: start: 20101122
  14. ITRACONAZOLE [Concomitant]
     Dosage: 40 MILLILITER
     Route: 048
     Dates: start: 20110110
  15. BEECOM HEXA [Concomitant]
     Dosage: 1 DOSAGE FORMS
     Route: 051
     Dates: start: 20110103, end: 20110103

REACTIONS (1)
  - PULMONARY EMBOLISM [None]
